FAERS Safety Report 7203940-3 (Version None)
Quarter: 2010Q4

REPORT INFORMATION
  Report Type: 
  Country: None (occurrence: None)
  Receive Date: 20101230
  Receipt Date: 20101223
  Transmission Date: 20110411
  Serious: Yes (Other)
  Sender: FDA-Public Use
  Company Number: US-PFIZER INC-2010178644

PATIENT
  Age: 27 Year
  Sex: Female

DRUGS (2)
  1. XANAX [Suspect]
     Dosage: UNK
     Route: 048
  2. PAXIL [Suspect]
     Indication: PANIC DISORDER
     Dosage: VARIABLE DOSE
     Route: 048

REACTIONS (8)
  - DRUG ADMINISTRATION ERROR [None]
  - HALLUCINATION [None]
  - NIGHTMARE [None]
  - OVERDOSE [None]
  - POSTURE ABNORMAL [None]
  - SELF-MEDICATION [None]
  - SOMNOLENCE [None]
  - WEIGHT INCREASED [None]
